FAERS Safety Report 5201078-8 (Version None)
Quarter: 2007Q1

REPORT INFORMATION
  Report Type: 
  Country: None (occurrence: None)
  Receive Date: 20070108
  Receipt Date: 20070102
  Transmission Date: 20070707
  Serious: Yes (Hospitalization)
  Sender: FDA-Public Use
  Company Number: US-ELI_LILLY_AND_COMPANY-US200609006658

PATIENT
  Age: 41 Year
  Sex: Female
  Weight: 90.702 kg

DRUGS (1)
  1. ZYPREXA [Suspect]
     Dates: start: 20000101

REACTIONS (3)
  - CARDIAC DISORDER [None]
  - DIABETES MELLITUS [None]
  - METABOLIC DISORDER [None]
